FAERS Safety Report 7954629 (Version 6)
Quarter: 2013Q2

REPORT INFORMATION
  Report Type: Spontaneous
  Country: US (occurrence: US)
  Receive Date: 20110520
  Receipt Date: 20130617
  Transmission Date: 20140414
  Serious: No
  Sender: FDA-Public Use
  Company Number: US-ASTRAZENECA-2011SE28543

PATIENT
  Age: 65 Year
  Sex: Female

DRUGS (1)
  1. CRESTOR [Suspect]
     Route: 048

REACTIONS (7)
  - Cardiac disorder [Unknown]
  - Hypertension [Unknown]
  - Laboratory test abnormal [Unknown]
  - Malaise [Unknown]
  - Weight increased [Unknown]
  - Blood cholesterol increased [Unknown]
  - Drug dose omission [Unknown]
